FAERS Safety Report 7609484-9 (Version None)
Quarter: 2011Q3

REPORT INFORMATION
  Report Type: 
  Country: None (occurrence: None)
  Receive Date: 20110713
  Receipt Date: 20110713
  Transmission Date: 20111222
  Serious: Yes (Hospitalization)
  Sender: FDA-Public Use
  Company Number: None

PATIENT
  Age: 56 Year
  Sex: Female
  Weight: 58 kg

DRUGS (1)
  1. BEVACIZUMAB UNKNOWN [Suspect]
     Indication: COLON CANCER
     Dosage: 2ND DOSE
     Dates: start: 20100928, end: 20100928

REACTIONS (4)
  - UNRESPONSIVE TO STIMULI [None]
  - NYSTAGMUS [None]
  - BLOOD PRESSURE INCREASED [None]
  - POSTERIOR REVERSIBLE ENCEPHALOPATHY SYNDROME [None]
